FAERS Safety Report 16363002 (Version 3)
Quarter: 2019Q4

REPORT INFORMATION
  Report Type: Report from Study
  Country: MX (occurrence: MX)
  Receive Date: 20190528
  Receipt Date: 20191205
  Transmission Date: 20200122
  Serious: Yes (Hospitalization, Other)
  Sender: FDA-Public Use
  Company Number: PHHY2019MX122372

PATIENT
  Age: 83 Year
  Sex: Male
  Weight: 86 kg

DRUGS (4)
  1. ADALAT [Concomitant]
     Active Substance: NIFEDIPINE
     Indication: HYPERTENSION
     Dosage: 1 DF, QD
     Route: 048
     Dates: end: 201901
  2. CO-DIOVAN [Suspect]
     Active Substance: HYDROCHLOROTHIAZIDE\VALSARTAN
     Dosage: 0.5 DF, QD (12.5 MG HYDROCHLOROTHIAZIDE, 80 MG VALSARTAN)
     Route: 048
     Dates: start: 201906
  3. CO-DIOVAN [Suspect]
     Active Substance: HYDROCHLOROTHIAZIDE\VALSARTAN
     Dosage: 1 DF, Q2W (12.5 MG HYDROCHLOROTHIAZIDE, 80 MG VALSARTAN)
     Route: 048
     Dates: end: 201906
  4. CO-DIOVAN [Suspect]
     Active Substance: HYDROCHLOROTHIAZIDE\VALSARTAN
     Indication: HYPERTENSION
     Dosage: 1 DF, QD (12.5 MG HYDROCHLOROTHIAZIDE, 80 MG VALSARTAN)
     Route: 048
     Dates: start: 1991, end: 201906

REACTIONS (14)
  - Product prescribing error [Unknown]
  - Malaise [Unknown]
  - Infarction [Unknown]
  - Atrial flutter [Unknown]
  - Blood pressure decreased [Unknown]
  - Cerebral infarction [Recovered/Resolved with Sequelae]
  - Arrhythmia [Not Recovered/Not Resolved]
  - Traumatic lung injury [Unknown]
  - Renal failure [Recovered/Resolved]
  - Cardiac fibrillation [Unknown]
  - Blood creatinine increased [Recovered/Resolved]
  - Wrong technique in product usage process [Not Recovered/Not Resolved]
  - Inappropriate schedule of product administration [Unknown]
  - Brain injury [Not Recovered/Not Resolved]

NARRATIVE: CASE EVENT DATE: 201901
